FAERS Safety Report 24249647 (Version 1)
Quarter: 2024Q3

REPORT INFORMATION
  Report Type: Spontaneous
  Country: CA (occurrence: CA)
  Receive Date: 20240826
  Receipt Date: 20240826
  Transmission Date: 20241016
  Serious: Yes (Life-Threatening)
  Sender: PFIZER
  Company Number: CA-PFIZER INC-202400242090

PATIENT
  Age: 69 Year
  Sex: Female

DRUGS (17)
  1. ABRILADA [Suspect]
     Active Substance: ADALIMUMAB-AFZB
     Indication: Palmoplantar pustulosis
     Dosage: 0.8 ML, 1 EVERY 2 WEEKS
  2. CONCERTA [Concomitant]
     Active Substance: METHYLPHENIDATE HYDROCHLORIDE
  3. CRESTOR [Concomitant]
     Active Substance: ROSUVASTATIN CALCIUM
  4. BETAMETHASONE DIPROPIONATE\CALCIPOTRIENE MONOHYDRATE [Concomitant]
     Active Substance: BETAMETHASONE DIPROPIONATE\CALCIPOTRIENE MONOHYDRATE
  5. EZETIMIBE [Concomitant]
     Active Substance: EZETIMIBE
  6. FUSIDIC ACID [Concomitant]
     Active Substance: FUSIDIC ACID
  7. HYDROCORTISONE [Concomitant]
     Active Substance: HYDROCORTISONE\HYDROCORTISONE ACETATE
  8. PREVACID [Concomitant]
     Active Substance: LANSOPRAZOLE
  9. SEROQUEL [Concomitant]
     Active Substance: QUETIAPINE FUMARATE
  10. TRETINOIN [Concomitant]
     Active Substance: TRETINOIN
  11. SYNTHROID [Concomitant]
     Active Substance: LEVOTHYROXINE SODIUM
  12. VALIUM [Concomitant]
     Active Substance: DIAZEPAM
  13. VALTREX [Concomitant]
     Active Substance: VALACYCLOVIR HYDROCHLORIDE
  14. VENTOLIN HFA [Concomitant]
     Active Substance: ALBUTEROL SULFATE
  15. ZENHALE [Concomitant]
     Active Substance: FORMOTEROL FUMARATE\MOMETASONE FUROATE
  16. ZOLOFT [Concomitant]
     Active Substance: SERTRALINE HYDROCHLORIDE
  17. ZOVIRAX [Concomitant]
     Active Substance: ACYCLOVIR

REACTIONS (4)
  - Interstitial lung disease [Not Recovered/Not Resolved]
  - Oxygen therapy [Not Recovered/Not Resolved]
  - Product substitution issue [Not Recovered/Not Resolved]
  - Off label use [Unknown]
